FAERS Safety Report 7263404-8 (Version None)
Quarter: 2011Q1

REPORT INFORMATION
  Report Type: 
  Country: None (occurrence: None)
  Receive Date: 20110130
  Receipt Date: 20101025
  Transmission Date: 20110831
  Serious: No
  Sender: FDA-Public Use
  Company Number: US-ABBOTT-10P-163-0681781-00

PATIENT
  Sex: Female
  Weight: 53.572 kg

DRUGS (3)
  1. CRESTOR [Suspect]
     Indication: BLOOD CHOLESTEROL INCREASED
     Dates: start: 20090601, end: 20100601
  2. HUMIRA [Suspect]
     Route: 058
     Dates: start: 20100401, end: 20100501
  3. HUMIRA [Suspect]
     Indication: PSORIATIC ARTHROPATHY
     Route: 058
     Dates: start: 20070101, end: 20090301

REACTIONS (3)
  - MOVEMENT DISORDER [None]
  - BONE MARROW DISORDER [None]
  - NECK PAIN [None]
